FAERS Safety Report 18473385 (Version 2)
Quarter: 2022Q2

REPORT INFORMATION
  Report Type: Report from Study
  Country: US (occurrence: US)
  Receive Date: 20201106
  Receipt Date: 20220420
  Transmission Date: 20220721
  Serious: Yes (Hospitalization, Other)
  Sender: FDA-Public Use
  Company Number: US-CLOVIS ONCOLOGY-CLO-2020-002079

PATIENT
  Sex: Female

DRUGS (1)
  1. RUBRACA [Suspect]
     Active Substance: RUCAPARIB CAMSYLATE
     Indication: Ovarian cancer
     Dosage: 300 MG, BID
     Route: 048
     Dates: start: 20170322, end: 202009

REACTIONS (5)
  - Renal failure [Unknown]
  - Rib fracture [Unknown]
  - Road traffic accident [Unknown]
  - Burning mouth syndrome [Unknown]
  - Pain [Unknown]

NARRATIVE: CASE EVENT DATE: 20200101
